FAERS Safety Report 8484469-1 (Version None)
Quarter: 2012Q3

REPORT INFORMATION
  Report Type: 
  Country: None (occurrence: None)
  Receive Date: 20120703
  Receipt Date: 20120628
  Transmission Date: 20120928
  Serious: Yes (Hospitalization)
  Sender: FDA-Public Use
  Company Number: PHHO2012US007654

PATIENT
  Sex: Male
  Weight: 136 kg

DRUGS (34)
  1. AMIODARONE HYDROCHLORIDE [Concomitant]
     Indication: HYPERTENSION
     Dosage: 10 MG, QD
     Route: 048
     Dates: start: 20100805
  2. BENADRYL [Concomitant]
     Dosage: 25-50 MG, PRN
  3. VICTOZA [Concomitant]
     Dosage: 1.8 MG, QD
  4. NEBIVOLOL [Concomitant]
  5. NIASPAN [Concomitant]
     Indication: HYPERLIPIDAEMIA
     Dosage: 500 MG, TID
     Route: 048
     Dates: start: 20100924
  6. PROTONIX [Concomitant]
     Dosage: 40 MG, QD
  7. ZANTAC [Concomitant]
     Dosage: 150 MG, BID
  8. FLOMAX [Concomitant]
     Dosage: 0.8 MG, QD
  9. WELCHOL [Concomitant]
     Indication: CORONARY ARTERY DISEASE
     Dosage: 625 MG, TID
     Route: 048
     Dates: start: 20110802
  10. ZYLOPRIM [Concomitant]
     Dosage: 300 MG, QD
     Route: 048
  11. ASPIRIN [Concomitant]
     Dosage: 325 MG, QD
     Route: 048
  12. LOSARTAN POTASSIUM [Concomitant]
  13. PLACEBO [Suspect]
     Indication: CARDIOVASCULAR EVENT PROPHYLAXIS
     Dosage: DOUBLE BLIND
     Route: 058
     Dates: start: 20110822
  14. AMARYL [Concomitant]
     Dosage: 8 MG, QD
     Route: 048
  15. IMDUR [Concomitant]
     Dosage: 60 MG, QD
     Route: 048
  16. MULTIPLE VITAMIN [Concomitant]
     Dosage: 1 DF, QD
  17. BLINDED NO TREATMENT RECEIVED [Suspect]
     Indication: CARDIOVASCULAR EVENT PROPHYLAXIS
     Dosage: DOUBLE BLIND
     Route: 058
     Dates: start: 20110822
  18. COLCHICINE [Concomitant]
     Dosage: 0.6 MG, BID
     Route: 048
  19. NEURONTIN [Concomitant]
     Dosage: 300 MG, TID
     Route: 048
  20. COZAAR [Concomitant]
     Indication: HYPERTENSION
     Dosage: 100 MG, QD
     Route: 048
     Dates: start: 20110701
  21. NORVASC [Concomitant]
     Dosage: 10 MG, QD
     Route: 048
  22. MOTRIN [Concomitant]
     Dosage: 600 MG, PRN
  23. SYNTHROID [Concomitant]
     Dosage: 125 UNK, QD
     Route: 048
  24. POTASSIUM CHLORIDE [Concomitant]
     Dosage: 20 MEQ, BID
  25. RANEXA [Concomitant]
     Indication: CORONARY ARTERY DISEASE
     Dosage: 1 DF, BID
  26. ILARIS [Suspect]
     Indication: CARDIOVASCULAR EVENT PROPHYLAXIS
     Dosage: DOUBLE BLIND
     Route: 058
     Dates: start: 20110822
  27. PROAIR HFA [Concomitant]
     Dosage: 2 DF, Q4H
  28. VITAMIN B-12 [Concomitant]
     Dosage: 250 MG, QD
     Route: 048
  29. DEMADEX [Concomitant]
     Dosage: 40 MG, QD
  30. PLAVIX [Concomitant]
     Indication: CORONARY ARTERY DISEASE
     Dosage: 75 MG, QD
     Route: 048
     Dates: start: 20060601
  31. LIPITOR [Concomitant]
     Dosage: 10 MG, QD
     Route: 048
  32. CORTEF [Concomitant]
     Indication: HYPOPITUITARISM
     Dosage: 30 MG, QD
  33. BYSTOLIC [Concomitant]
     Dosage: 20 MG, QD
  34. MIRALAX [Concomitant]
     Dosage: 17 G, QD

REACTIONS (1)
  - CELLULITIS [None]
